FAERS Safety Report 10067166 (Version 1)
Quarter: 2014Q2

REPORT INFORMATION
  Report Type: Spontaneous
  Country: US (occurrence: None)
  Receive Date: 20140407
  Receipt Date: 20140407
  Transmission Date: 20141212
  Serious: Yes (Hospitalization, Other)
  Sender: FDA-Public Use
  Company Number: AUR-APL-2014-04105

PATIENT
  Age: 35 Year
  Sex: Male

DRUGS (2)
  1. LIDOCAINE (LIDOCAINE) [Suspect]
     Indication: NERVE BLOCK
  2. BUPIVACAINE (BUPIVACAINE) INJECTION [Suspect]
     Indication: NERVE BLOCK

REACTIONS (6)
  - Stress cardiomyopathy [None]
  - Myocardial depression [None]
  - Loss of consciousness [None]
  - Pulmonary oedema [None]
  - Sinus tachycardia [None]
  - Ventricular hypokinesia [None]
